FAERS Safety Report 10077126 (Version 2)
Quarter: 2014Q2

REPORT INFORMATION
  Report Type: Spontaneous
  Country: CO (occurrence: CO)
  Receive Date: 20140414
  Receipt Date: 20140415
  Transmission Date: 20141212
  Serious: Yes (Death, Hospitalization)
  Sender: FDA-Public Use
  Company Number: CO-PFIZER INC-2014103729

PATIENT
  Age: 95 Year
  Sex: Female

DRUGS (2)
  1. NEURONTIN [Suspect]
     Indication: EPILEPSY
     Dosage: 300 MG, 2X/DAY
     Route: 048
     Dates: start: 2008
  2. NEURONTIN [Suspect]
     Indication: NEUROPATHY PERIPHERAL

REACTIONS (4)
  - Pneumonia [Fatal]
  - Platelet count decreased [Fatal]
  - Epilepsy [Fatal]
  - Dysphagia [Not Recovered/Not Resolved]
